FAERS Safety Report 24151146 (Version 1)
Quarter: 2024Q3

REPORT INFORMATION
  Report Type: Spontaneous
  Country: US (occurrence: US)
  Receive Date: 20240730
  Receipt Date: 20240730
  Transmission Date: 20241016
  Serious: Yes (Other)
  Sender: BAYER
  Company Number: US-BAYER-2024A108651

PATIENT
  Age: 68 Year
  Sex: Female

DRUGS (1)
  1. NAPROXEN SODIUM [Suspect]
     Active Substance: NAPROXEN\NAPROXEN SODIUM
     Dosage: 12 DF, QD

REACTIONS (6)
  - Overdose [None]
  - Gastric ulcer perforation [Recovered/Resolved with Sequelae]
  - Haemorrhagic cholecystitis [None]
  - Abdominal pain upper [None]
  - Nausea [None]
  - Vomiting [None]
